FAERS Safety Report 23257171 (Version 2)
Quarter: 2024Q3

REPORT INFORMATION
  Report Type: Report from Study
  Country: PK (occurrence: PK)
  Receive Date: 20231204
  Receipt Date: 20240819
  Transmission Date: 20241016
  Serious: Yes (Death)
  Sender: ROCHE
  Company Number: PK-ROCHE-3465903

PATIENT
  Age: 63 Year
  Sex: Female

DRUGS (11)
  1. MABTHERA [Suspect]
     Active Substance: RITUXIMAB
     Indication: Follicular lymphoma
     Dosage: BATCH NUMBER WAS REQUESTED AND NOT AVAILABLE WITH THE REPORTER
     Route: 058
     Dates: start: 20231031
  2. MABTHERA [Suspect]
     Active Substance: RITUXIMAB
     Route: 058
     Dates: start: 2022, end: 20220905
  3. MABTHERA [Suspect]
     Active Substance: RITUXIMAB
     Route: 058
  4. MABTHERA [Suspect]
     Active Substance: RITUXIMAB
     Route: 058
  5. MABTHERA [Suspect]
     Active Substance: RITUXIMAB
     Route: 058
  6. MABTHERA [Suspect]
     Active Substance: RITUXIMAB
     Route: 058
     Dates: start: 20180403, end: 20240228
  7. MABTHERA [Suspect]
     Active Substance: RITUXIMAB
     Route: 058
  8. RITUXIMAB [Suspect]
     Active Substance: RITUXIMAB
     Indication: Follicular lymphoma
     Route: 065
     Dates: start: 2018, end: 201903
  9. RITUXIMAB [Suspect]
     Active Substance: RITUXIMAB
     Route: 065
  10. RITUXIMAB [Suspect]
     Active Substance: RITUXIMAB
     Route: 065
  11. RITUXIMAB [Suspect]
     Active Substance: RITUXIMAB
     Route: 065

REACTIONS (1)
  - Follicular lymphoma recurrent [Fatal]
